FAERS Safety Report 5295270-4 (Version None)
Quarter: 2007Q2

REPORT INFORMATION
  Report Type: 
  Country: None (occurrence: None)
  Receive Date: 20070412
  Receipt Date: 20070410
  Transmission Date: 20071010
  Serious: Yes (Hospitalization)
  Sender: FDA-Public Use
  Company Number: US-ELI_LILLY_AND_COMPANY-US200611000109

PATIENT
  Age: 47 Year
  Sex: Male
  Weight: 115.65 kg

DRUGS (5)
  1. LOTENSIN [Concomitant]
     Dosage: UNK D/F, UNK
  2. NEXIUM [Concomitant]
     Dosage: 40 MG, UNK
  3. ZYRTEC [Concomitant]
     Dosage: 10 MG, DAILY (1/D)
  4. CYMBALTA [Suspect]
     Indication: DEPRESSION
     Dosage: 60 MG, DAILY (1/D)
     Dates: start: 20061001, end: 20061023
  5. LIPITOR [Concomitant]
     Dosage: 20 MG, DAILY (1/D)

REACTIONS (14)
  - ABDOMINAL PAIN [None]
  - ALANINE AMINOTRANSFERASE INCREASED [None]
  - ASPARTATE AMINOTRANSFERASE INCREASED [None]
  - BLOOD ALKALINE PHOSPHATASE INCREASED [None]
  - BLOOD BILIRUBIN INCREASED [None]
  - BLOOD CREATINE PHOSPHOKINASE INCREASED [None]
  - DECREASED APPETITE [None]
  - INFLUENZA LIKE ILLNESS [None]
  - JAUNDICE [None]
  - NAUSEA [None]
  - OCULAR ICTERUS [None]
  - PROTHROMBIN TIME PROLONGED [None]
  - URINE COLOUR ABNORMAL [None]
  - VOMITING [None]
